FAERS Safety Report 7361949-3 (Version None)
Quarter: 2011Q1

REPORT INFORMATION
  Report Type: 
  Country: None (occurrence: None)
  Receive Date: 20110315
  Receipt Date: 20110315
  Transmission Date: 20110831
  Serious: Yes (Other)
  Sender: FDA-Public Use
  Company Number: None

PATIENT
  Age: 53 Year
  Sex: Male
  Weight: 103 kg

DRUGS (2)
  1. VANCOMYCIN HCL [Suspect]
     Indication: STAPHYLOCOCCAL BACTERAEMIA
     Dosage: VARYING DOSES PER LEVELS SEE#6 Q48HRS IV DRIP
     Route: 041
     Dates: start: 20110114, end: 20110224
  2. GENTAMICIN SULFATE [Suspect]
     Indication: STAPHYLOCOCCAL BACTERAEMIA
     Dosage: 100 MG Q48HRS IV DRIP
     Route: 041
     Dates: start: 20110114, end: 20110124

REACTIONS (2)
  - BALANCE DISORDER [None]
  - DIZZINESS [None]
